FAERS Safety Report 20673024 (Version 1)
Quarter: 2022Q2

REPORT INFORMATION
  Report Type: Spontaneous
  Country: FR (occurrence: FR)
  Receive Date: 20220405
  Receipt Date: 20220405
  Transmission Date: 20220721
  Serious: Yes (Hospitalization, Other)
  Sender: FDA-Public Use
  Company Number: None

PATIENT
  Age: 48 Year
  Sex: Male
  Weight: 110 kg

DRUGS (4)
  1. IPILIMUMAB [Suspect]
     Active Substance: IPILIMUMAB
     Indication: Malignant melanoma stage IV
     Route: 041
     Dates: start: 20210104, end: 20210104
  2. NIVOLUMAB [Suspect]
     Active Substance: NIVOLUMAB
     Indication: Malignant melanoma stage IV
     Route: 041
     Dates: start: 20191112, end: 20210104
  3. NIVOLUMAB\RELATLIMAB-RMBW [Suspect]
     Active Substance: NIVOLUMAB\RELATLIMAB-RMBW
     Indication: Malignant melanoma stage IV
  4. PREDNISONE [Concomitant]
     Active Substance: PREDNISONE
     Indication: Colitis microscopic
     Dosage: DECROISSANCE PROGRESSIVE DE 10 MG TOUTES LES 2 SEMAINES
     Route: 048
     Dates: start: 20210203, end: 202107

REACTIONS (2)
  - Orchitis [Recovered/Resolved]
  - Colitis microscopic [Recovered/Resolved]

NARRATIVE: CASE EVENT DATE: 20210118
